FAERS Safety Report 22073424 (Version 1)
Quarter: 2023Q1

REPORT INFORMATION
  Report Type: Spontaneous
  Country: CN (occurrence: CN)
  Receive Date: 20230308
  Receipt Date: 20230308
  Transmission Date: 20230417
  Serious: Yes (Hospitalization)
  Sender: FDA-Public Use
  Company Number: None

PATIENT
  Age: 66 Year
  Sex: Female
  Weight: 62 kg

DRUGS (4)
  1. CYCLOPHOSPHAMIDE [Suspect]
     Active Substance: CYCLOPHOSPHAMIDE
     Indication: Breast cancer female
     Dosage: 900 MG, QD, DILUTED WITH 250ML 0.9% SODIUM CHLORIDE
     Route: 041
     Dates: start: 20230201, end: 20230201
  2. DOCETAXEL [Suspect]
     Active Substance: DOCETAXEL
     Indication: Breast cancer female
     Dosage: 120 MG, QD, DILUTED WITH 0.9% SODIUM CHLORIDE
     Route: 041
     Dates: start: 20230201, end: 20230201
  3. SODIUM CHLORIDE [Suspect]
     Active Substance: SODIUM CHLORIDE
     Indication: Vehicle solution use
     Dosage: 250 ML, QD, USED TO DILUTE 900 MG CYCLOPHOSPHAMIDE
     Route: 041
     Dates: start: 20230201, end: 20230201
  4. SODIUM CHLORIDE [Suspect]
     Active Substance: SODIUM CHLORIDE
     Dosage: 500 ML, QD, USED TO DILUTE 120 MG DOCETAXEL
     Route: 041
     Dates: start: 20230201, end: 20230201

REACTIONS (3)
  - Faeces discoloured [Unknown]
  - Diarrhoea [Recovering/Resolving]
  - Abdominal pain [Recovering/Resolving]

NARRATIVE: CASE EVENT DATE: 20230201
